FAERS Safety Report 12419559 (Version 1)
Quarter: 2016Q2

REPORT INFORMATION
  Report Type: Report from Study
  Country: TH (occurrence: TH)
  Receive Date: 20160531
  Receipt Date: 20160531
  Transmission Date: 20160815
  Serious: Yes (Death, Hospitalization)
  Sender: FDA-Public Use
  Company Number: PHHY2016TH072756

PATIENT
  Age: 35 Year
  Sex: Female

DRUGS (1)
  1. GLIVEC [Suspect]
     Active Substance: IMATINIB MESYLATE
     Indication: CHRONIC MYELOID LEUKAEMIA
     Dosage: 600 MG, UNK
     Route: 065

REACTIONS (11)
  - Acute respiratory failure [Unknown]
  - Dyspnoea [Unknown]
  - Febrile neutropenia [Unknown]
  - Anaemia [Unknown]
  - Pyrexia [Unknown]
  - Chronic myeloid leukaemia transformation [Unknown]
  - Hypokalaemia [Unknown]
  - Cardio-respiratory arrest [Fatal]
  - Hypomagnesaemia [Unknown]
  - Acute lymphocytic leukaemia [Unknown]
  - Aspergillus infection [Unknown]

NARRATIVE: CASE EVENT DATE: 20160323
